FAERS Safety Report 9680492 (Version 1)
Quarter: 2013Q4

REPORT INFORMATION
  Report Type: Spontaneous
  Country: US (occurrence: US)
  Receive Date: 20131111
  Receipt Date: 20131111
  Transmission Date: 20140711
  Serious: No
  Sender: FDA-Public Use
  Company Number: US-PFIZER INC-2013319133

PATIENT
  Sex: Female

DRUGS (1)
  1. ZOLOFT [Suspect]
     Dosage: UNK

REACTIONS (13)
  - Crying [Unknown]
  - Decreased interest [Unknown]
  - Depressed mood [Unknown]
  - Fatigue [Unknown]
  - Headache [Unknown]
  - Apathy [Unknown]
  - Psychiatric symptom [Unknown]
  - Abdominal discomfort [Unknown]
  - Nervousness [Unknown]
  - Appetite disorder [Unknown]
  - Myalgia [Unknown]
  - Tension [Unknown]
  - Asthenia [Unknown]
